FAERS Safety Report 17863438 (Version 6)
Quarter: 2020Q4

REPORT INFORMATION
  Report Type: Spontaneous
  Country: US (occurrence: US)
  Receive Date: 20200605
  Receipt Date: 20201111
  Transmission Date: 20210113
  Serious: Yes (Other)
  Sender: FDA-Public Use
  Company Number: US-GLAXOSMITHKLINE-US2020AMR092293

PATIENT
  Sex: Female

DRUGS (5)
  1. ZEJULA [Suspect]
     Active Substance: NIRAPARIB
     Indication: OVARIAN CANCER
     Dosage: 200 MG, QD
     Route: 065
     Dates: start: 20200506
  2. ZEJULA [Suspect]
     Active Substance: NIRAPARIB
     Dosage: 100 MG, QD, IN THE AM WITH FOOD
     Route: 065
  3. ZEJULA [Suspect]
     Active Substance: NIRAPARIB
     Dosage: 100 MG, QD
  4. ZEJULA [Suspect]
     Active Substance: NIRAPARIB
     Dosage: 100 MG, QD
     Route: 065
  5. ZEJULA [Suspect]
     Active Substance: NIRAPARIB
     Dosage: 100 MG, QD
     Route: 048
     Dates: end: 20201019

REACTIONS (10)
  - Carcinoembryonic antigen increased [Unknown]
  - Pain in extremity [Unknown]
  - Underdose [Unknown]
  - Myalgia [Unknown]
  - Pruritus [Unknown]
  - Nausea [Unknown]
  - Abdominal discomfort [Unknown]
  - Constipation [Unknown]
  - Gastrointestinal carcinoma [Unknown]
  - Blood creatinine increased [Unknown]
